FAERS Safety Report 8045327-X (Version None)
Quarter: 2012Q1

REPORT INFORMATION
  Report Type: 
  Country: None (occurrence: None)
  Receive Date: 20120113
  Receipt Date: 20120109
  Transmission Date: 20120608
  Serious: Yes (Other)
  Sender: FDA-Public Use
  Company Number: US-TEVA-317223USA

PATIENT
  Age: 63 Year
  Sex: Male

DRUGS (2)
  1. INFLIXIMAB [Suspect]
     Indication: TUMOUR NECROSIS
  2. METHOTREXATE [Suspect]

REACTIONS (1)
  - DEMYELINATING POLYNEUROPATHY [None]
